FAERS Safety Report 12268907 (Version 2)
Quarter: 2019Q4

REPORT INFORMATION
  Report Type: Spontaneous
  Country: US (occurrence: US)
  Receive Date: 20160414
  Receipt Date: 20191112
  Transmission Date: 20200122
  Serious: Yes (Other)
  Sender: FDA-Public Use
  Company Number: US-PFIZER INC-2016208384

PATIENT
  Age: 72 Year
  Sex: Male

DRUGS (6)
  1. STENDRA [Concomitant]
     Active Substance: AVANAFIL
     Indication: ERECTILE DYSFUNCTION
     Dosage: UNK UNK, 1X/DAY
     Dates: start: 20140717, end: 201501
  2. TESTOSTERONE. [Concomitant]
     Active Substance: TESTOSTERONE
     Indication: ERECTILE DYSFUNCTION
     Dosage: 115 MG/G, 4 CLICKS PER DAY (2 OR 3 TIMES)
     Dates: start: 2011, end: 2011
  3. ANASTROZOLE. [Concomitant]
     Active Substance: ANASTROZOLE
     Indication: ERECTILE DYSFUNCTION
     Dosage: 0.5 MG, 1X/DAY (2 OR 3 TIMES)
     Dates: start: 2011, end: 2011
  4. VIAGRA [Suspect]
     Active Substance: SILDENAFIL CITRATE
     Indication: ERECTILE DYSFUNCTION
     Dosage: UNK (REGULARLY)
     Route: 048
     Dates: start: 200608, end: 201407
  5. PREGNENOLONE [Concomitant]
     Active Substance: PREGNENOLONE
     Indication: ERECTILE DYSFUNCTION
     Dosage: UNK UNK, 1X/DAY (2 OR 3 TIMES)
     Dates: start: 2011, end: 2011
  6. DHEA [Concomitant]
     Active Substance: PRASTERONE
     Indication: ERECTILE DYSFUNCTION
     Dosage: UNK UNK, 1X/DAY (2 OR 3 TIMES)
     Dates: start: 2011, end: 2011

REACTIONS (4)
  - Anxiety [Unknown]
  - Lentigo maligna [Unknown]
  - Malignant melanoma in situ [Unknown]
  - Emotional distress [Unknown]

NARRATIVE: CASE EVENT DATE: 20130731
